FAERS Safety Report 21681569 (Version 5)
Quarter: 2023Q1

REPORT INFORMATION
  Report Type: Spontaneous
  Country: US (occurrence: US)
  Receive Date: 20221205
  Receipt Date: 20230116
  Transmission Date: 20230417
  Serious: Yes (Hospitalization, Other)
  Sender: FDA-Public Use
  Company Number: US-002147023-NVSC2022US281629

PATIENT
  Age: 48 Year
  Sex: Female

DRUGS (3)
  1. VOTRIENT [Suspect]
     Active Substance: PAZOPANIB HYDROCHLORIDE
     Indication: Malignant connective tissue neoplasm
     Dosage: 800 MG, QD
     Route: 048
     Dates: start: 20221128
  2. VOTRIENT [Suspect]
     Active Substance: PAZOPANIB HYDROCHLORIDE
     Indication: Neoplasm malignant
     Dosage: 800 MG, QD
     Route: 048
     Dates: start: 202211
  3. VOTRIENT [Suspect]
     Active Substance: PAZOPANIB HYDROCHLORIDE
     Indication: Soft tissue sarcoma

REACTIONS (7)
  - Pulmonary thrombosis [Unknown]
  - Pulmonary embolism [Unknown]
  - Thrombosis [Unknown]
  - Oral pain [Unknown]
  - COVID-19 [Unknown]
  - Cough [Unknown]
  - Muscle spasms [Unknown]

NARRATIVE: CASE EVENT DATE: 20221223
